FAERS Safety Report 4973090-5 (Version None)
Quarter: 2006Q2

REPORT INFORMATION
  Report Type: 
  Country: None (occurrence: None)
  Receive Date: 20060414
  Receipt Date: 20060404
  Transmission Date: 20061013
  Serious: Yes (Hospitalization)
  Sender: FDA-Public Use
  Company Number: NL-ROCHE-443079

PATIENT
  Age: 57 Year
  Sex: Male

DRUGS (7)
  1. CAPECITABINE [Suspect]
     Dosage: ON DAYS ONE TO FOURTEEN EVERY THREE WEEKS
     Route: 048
     Dates: start: 20060306, end: 20060310
  2. CAPECITABINE [Suspect]
     Dosage: ON DAYS ONE TO FOURTEEN EVERY THREE WEEKS
     Route: 048
     Dates: start: 20060312
  3. AVASTIN [Suspect]
     Route: 042
     Dates: start: 20060306
  4. OXALIPLATIN [Suspect]
     Route: 042
     Dates: start: 20060306
  5. METOCLOPRAMIDE [Concomitant]
  6. BACLOFEN [Concomitant]
  7. DOMPERIDON [Concomitant]

REACTIONS (2)
  - HICCUPS [None]
  - VOMITING [None]
